FAERS Safety Report 16021210 (Version 1)
Quarter: 2019Q1

REPORT INFORMATION
  Report Type: Spontaneous
  Country: IT (occurrence: IT)
  Receive Date: 20190301
  Receipt Date: 20190301
  Transmission Date: 20190418
  Serious: Yes (Hospitalization)
  Sender: FDA-Public Use
  Company Number: IT-AUROBINDO-AUR-APL-2019-009243

PATIENT

DRUGS (2)
  1. KEPPRA [Suspect]
     Active Substance: LEVETIRACETAM
     Indication: EPILEPSY
     Route: 042
     Dates: start: 20190117
  2. MEROPENEM AUROBINDO1000 MG POWDER FOR SOLUTION FORINJECTION ORINFUSION [Suspect]
     Active Substance: MEROPENEM
     Indication: MENINGOENCEPHALITIS BACTERIAL
     Dosage: 6 GRAM, ONCE A DAY
     Route: 042
     Dates: start: 20190120, end: 20190124

REACTIONS (1)
  - Transaminases increased [Recovering/Resolving]

NARRATIVE: CASE EVENT DATE: 20190123
